FAERS Safety Report 4359733-8 (Version None)
Quarter: 2004Q2

REPORT INFORMATION
  Report Type: 
  Country: None (occurrence: None)
  Receive Date: 20040512
  Receipt Date: 20040428
  Transmission Date: 20050107
  Serious: Yes (Hospitalization)
  Sender: FDA-Public Use
  Company Number: RENA-11005

PATIENT
  Age: 63 Year
  Sex: Male
  Weight: 54 kg

DRUGS (6)
  1. RENAGEL [Suspect]
     Indication: HYPERPHOSPHATAEMIA
     Dosage: 0.5 G TID PO
     Route: 048
     Dates: start: 20030809, end: 20031125
  2. CLCIUM CARBONATE [Concomitant]
  3. CALCITRIOL [Concomitant]
  4. CANDESARTAN CILEXETIL [Concomitant]
  5. CALCIUM POLYSTYRENE SULFONATE [Concomitant]
  6. LOMETAZEPAM [Concomitant]

REACTIONS (5)
  - DUODENAL ULCER HAEMORRHAGE [None]
  - FALL [None]
  - HAEMODIALYSIS [None]
  - LOSS OF CONSCIOUSNESS [None]
  - MELANAEMIA [None]
